FAERS Safety Report 6223541-3 (Version None)
Quarter: 2009Q2

REPORT INFORMATION
  Report Type: 
  Country: None (occurrence: None)
  Receive Date: 20090610
  Receipt Date: 20090602
  Transmission Date: 20091009
  Serious: No
  Sender: FDA-Public Use
  Company Number: 286584

PATIENT
  Age: 34 Year
  Sex: Male

DRUGS (1)
  1. VANCOMYCIN HCL [Suspect]
     Indication: ANTIBIOTIC THERAPY
     Dosage: UNKNOWN, 1 IN 1 DAY, INTRAVENOUS
     Route: 042
     Dates: start: 20090602, end: 20090602

REACTIONS (3)
  - INFUSION RELATED REACTION [None]
  - PRURITUS [None]
  - VOMITING [None]
